FAERS Safety Report 9666744 (Version 1)
Quarter: 2013Q4

REPORT INFORMATION
  Report Type: Spontaneous
  Country: US (occurrence: US)
  Receive Date: 20131104
  Receipt Date: 20131104
  Transmission Date: 20140711
  Serious: No
  Sender: FDA-Public Use
  Company Number: US-BIOGENIDEC-2013BI087356

PATIENT
  Age: 21 Year
  Sex: Female

DRUGS (3)
  1. TECFIDERA [Suspect]
     Indication: MULTIPLE SCLEROSIS
     Route: 048
     Dates: start: 20130603, end: 20130609
  2. TECFIDERA [Suspect]
     Indication: MULTIPLE SCLEROSIS
     Route: 048
     Dates: start: 20130610
  3. MEDROL [Concomitant]

REACTIONS (4)
  - Dysphagia [Not Recovered/Not Resolved]
  - Chills [Not Recovered/Not Resolved]
  - Paraesthesia [Unknown]
  - Constipation [Not Recovered/Not Resolved]
